FAERS Safety Report 4334033-0 (Version None)
Quarter: 2004Q2

REPORT INFORMATION
  Report Type: 
  Country: None (occurrence: None)
  Receive Date: 20040402
  Receipt Date: 20040323
  Transmission Date: 20050107
  Serious: Yes (Hospitalization)
  Sender: FDA-Public Use
  Company Number: 2004193341FR

PATIENT
  Age: 46 Year
  Sex: Male

DRUGS (7)
  1. CELEBREX [Suspect]
     Dosage: 200 MG DAILY, ORAL
     Route: 048
     Dates: end: 20031119
  2. METHOTREXATE [Suspect]
     Dosage: SEE IMAGE
     Route: 030
  3. METHOTREXATE [Suspect]
     Dosage: 10 MG, WEEKLY, INTRAMUSCULAR
     Route: 030
  4. METHOTREXATE [Suspect]
     Dosage: 12.5 MG, WEEKLY, INTRAMUSCULAR
     Route: 030
  5. METHOTREXATE [Suspect]
     Dosage: 20 MG, WEEKLY, INTRAMUSCUALR
     Route: 030
  6. ENBREL [Suspect]
     Dosage: 2 U, WEEKLY, SUBCUTANEOUS
     Route: 058
     Dates: start: 20030915, end: 20031118
  7. ANALGESIC LIQ [Concomitant]

REACTIONS (9)
  - ANTINUCLEAR ANTIBODY POSITIVE [None]
  - AORTIC ATHEROSCLEROSIS [None]
  - ARTERIAL THROMBOSIS LIMB [None]
  - COAGULATION FACTOR VIII LEVEL INCREASED [None]
  - COAGULATION FACTOR XI LEVEL INCREASED [None]
  - FIBRIN D DIMER INCREASED [None]
  - INTERMITTENT CLAUDICATION [None]
  - SUPRAVENTRICULAR EXTRASYSTOLES [None]
  - VENTRICULAR EXTRASYSTOLES [None]
